FAERS Safety Report 8660558 (Version 5)
Quarter: 2013Q2

REPORT INFORMATION
  Report Type: Spontaneous
  Country: US (occurrence: US)
  Receive Date: 20120711
  Receipt Date: 20130410
  Transmission Date: 20140414
  Serious: Yes (Hospitalization, Congenital Anomaly, Other)
  Sender: FDA-Public Use
  Company Number: US-JNJFOC-20120701826

PATIENT
  Age: 0 Year
  Sex: Female

DRUGS (2)
  1. TOPAMAX [Suspect]
     Indication: FOETAL EXPOSURE DURING PREGNANCY
     Route: 064
     Dates: start: 200402, end: 2012
  2. HEPARIN [Suspect]
     Indication: FOETAL EXPOSURE DURING PREGNANCY
     Route: 064

REACTIONS (11)
  - Cardiomegaly [Unknown]
  - Otitis media [Not Recovered/Not Resolved]
  - Ventricular septal defect [Recovered/Resolved]
  - Developmental delay [Unknown]
  - Gastrooesophageal reflux disease [Unknown]
  - Premature baby [Not Recovered/Not Resolved]
  - Hyperbilirubinaemia [Recovered/Resolved]
  - Cardiac murmur [Unknown]
  - Foetal growth restriction [Unknown]
  - Speech disorder [Unknown]
  - Breathing-related sleep disorder [Unknown]
